FAERS Safety Report 8815125 (Version 4)
Quarter: 2013Q3

REPORT INFORMATION
  Report Type: Report from Study
  Country: JP (occurrence: JP)
  Receive Date: 20120928
  Receipt Date: 20130801
  Transmission Date: 20140515
  Serious: Yes (Other)
  Sender: FDA-Public Use
  Company Number: JP-VERTEX PHARMACEUTICAL INC.-AE-2012-012030

PATIENT
  Age: 65 Year
  Sex: Female

DRUGS (13)
  1. VX-950 (TELAPREVIR) [Suspect]
     Indication: CHRONIC HEPATITIS C
     Dosage: 1500 MG, QD
     Route: 048
     Dates: start: 20120628, end: 20120921
  2. REBETOL [Suspect]
     Indication: CHRONIC HEPATITIS C
     Dosage: 600 MG, QD
     Route: 048
     Dates: start: 20120628, end: 20120704
  3. REBETOL [Suspect]
     Dosage: 400 MG, QD
     Route: 048
     Dates: start: 20120705, end: 20120809
  4. REBETOL [Suspect]
     Dosage: 200 MG, QD
     Route: 048
     Dates: start: 20120816, end: 20121024
  5. REBETOL [Suspect]
     Dosage: 400 MG, QD
     Route: 048
     Dates: start: 20121025
  6. PEGINTRON [Suspect]
     Indication: CHRONIC HEPATITIS C
     Dosage: 90 ?G, QW
     Route: 058
     Dates: start: 20120628, end: 20120802
  7. PEGINTRON [Suspect]
     Dosage: 60 ?G, QW
     Route: 058
     Dates: start: 20120816, end: 20121101
  8. PEGINTRON [Suspect]
     Dosage: 75 ?G, QW
     Route: 058
     Dates: start: 20121108
  9. FEBURIC [Concomitant]
     Dosage: 10 MG, QD
     Route: 048
     Dates: start: 20120703
  10. MYSLEE [Concomitant]
     Dosage: 5 MG, QD
     Route: 048
     Dates: end: 20121128
  11. PEGASYS [Concomitant]
     Dosage: 180 ?G, QW
     Route: 058
     Dates: start: 20120517, end: 20120621
  12. EURODIN [Concomitant]
     Dosage: 1 MG, QD
     Route: 048
     Dates: start: 20120629, end: 20121114
  13. COPEGUS [Concomitant]
     Dosage: 600 MG, QD
     Route: 048
     Dates: start: 20120517, end: 20120621

REACTIONS (2)
  - Neutrophil count decreased [Recovered/Resolved]
  - Akathisia [Recovered/Resolved]
